FAERS Safety Report 7000580-6 (Version None)
Quarter: 2010Q3

REPORT INFORMATION
  Report Type: 
  Country: None (occurrence: None)
  Receive Date: 20100920
  Receipt Date: 20070521
  Transmission Date: 20110219
  Serious: Yes (Hospitalization)
  Sender: FDA-Public Use
  Company Number: US-ASTRAZENECA-2006UW11906

PATIENT
  Age: 29 Year
  Sex: Female
  Weight: 90.7 kg

DRUGS (9)
  1. SEROQUEL [Suspect]
     Indication: MENTAL DISORDER
     Dosage: 200-600 MG
     Route: 048
     Dates: start: 20040614
  2. SEROQUEL [Suspect]
     Dosage: 100MG - 200MG
     Route: 048
     Dates: start: 20050101, end: 20060401
  3. ABILIFY [Concomitant]
     Dates: start: 20051101
  4. GEODON [Concomitant]
     Dates: start: 19990101
  5. HALDOL [Concomitant]
     Dates: start: 19950301, end: 19960101
  6. RISPERDAL [Concomitant]
     Dates: start: 20021010
  7. RISPERDAL [Concomitant]
     Dates: start: 20051206
  8. GLUCOPHAGE [Concomitant]
     Dosage: 1000-2000 MG DAILY
     Route: 048
     Dates: start: 20040818
  9. TRAZODONE HCL [Concomitant]
     Dosage: 50-100 MG AT NIGHT
     Dates: start: 20040818

REACTIONS (3)
  - DIABETES MELLITUS [None]
  - TYPE 1 DIABETES MELLITUS [None]
  - TYPE 2 DIABETES MELLITUS [None]
